FAERS Safety Report 14103255 (Version 1)
Quarter: 2017Q4

REPORT INFORMATION
  Report Type: Spontaneous
  Country: IT (occurrence: IT)
  Receive Date: 20171018
  Receipt Date: 20171018
  Transmission Date: 20180321
  Serious: Yes (Hospitalization)
  Sender: FDA-Public Use
  Company Number: IT-PFIZER INC-2017447020

PATIENT
  Age: 5 Month
  Sex: Female
  Weight: 6 kg

DRUGS (9)
  1. LIDOFAST /00033402/ [Concomitant]
     Indication: ANAL FISSURE
  2. VINCRISTINE SULFATE. [Suspect]
     Active Substance: VINCRISTINE SULFATE
     Indication: BRAIN NEOPLASM MALIGNANT
     Dosage: 0.32 MG, CYCLIC
     Route: 042
     Dates: start: 20160406, end: 20170719
  3. ULTRAPROCT /00225401/ [Concomitant]
     Indication: ANAL FISSURE
  4. NORMASE EPS [Concomitant]
     Dosage: 4 ML, UNK
     Route: 048
  5. SIMETHICONE (DIMETHICONE) [Concomitant]
     Active Substance: DIMETHICONE
     Dosage: 40 GTT, UNK
     Route: 048
  6. ZOFRAN [Concomitant]
     Active Substance: ONDANSETRON HYDROCHLORIDE
     Dosage: 4.5 MG, UNK
  7. CARBOPLATIN. [Suspect]
     Active Substance: CARBOPLATIN
     Indication: BRAIN NEOPLASM MALIGNANT
     Dosage: 118.3 MG, CYCLIC
     Route: 042
     Dates: start: 20160406, end: 20170203
  8. ANTRA /00661201/ [Concomitant]
     Active Substance: OMEPRAZOLE
     Dosage: 6 MG, UNK
     Route: 042
  9. TRIMETON [Concomitant]
     Active Substance: CHLORPHENIRAMINE MALEATE
     Dosage: 2 MG, UNK

REACTIONS (2)
  - Regurgitation [Recovering/Resolving]
  - Neutropenia [Recovering/Resolving]

NARRATIVE: CASE EVENT DATE: 20160407
